FAERS Safety Report 5142593-5 (Version None)
Quarter: 2006Q4

REPORT INFORMATION
  Report Type: 
  Country: None (occurrence: None)
  Receive Date: 20061027
  Receipt Date: 20061013
  Transmission Date: 20070319
  Serious: Yes (Other)
  Sender: FDA-Public Use
  Company Number: 2006US-04103

PATIENT
  Age: 42 Year

DRUGS (2)
  1. ISOTRETINOIN [Suspect]
     Dosage: 40 MG
     Dates: start: 20050301, end: 20060712
  2. TEMODAR [Concomitant]

REACTIONS (2)
  - NEOPLASM PROGRESSION [None]
  - OFF LABEL USE [None]
